FAERS Safety Report 10986274 (Version 2)
Quarter: 2015Q2

REPORT INFORMATION
  Report Type: Spontaneous
  Country: US (occurrence: US)
  Receive Date: 20150404
  Receipt Date: 20150525
  Transmission Date: 20150821
  Serious: No
  Sender: FDA-Public Use
  Company Number: US-JNJFOC-20140117399

PATIENT
  Age: 66 Year
  Sex: Female
  Weight: 56.7 kg

DRUGS (3)
  1. IMODIUM MULTI-SYMPTOM RELIEF [Suspect]
     Active Substance: DIMETHICONE\LOPERAMIDE HYDROCHLORIDE
     Route: 048
  2. IMODIUM MULTI-SYMPTOM RELIEF [Suspect]
     Active Substance: DIMETHICONE\LOPERAMIDE HYDROCHLORIDE
     Indication: DIARRHOEA
     Dosage: 2 CAPLETS AT FIRST AND THEN 1 CAPLET;
     Route: 048
     Dates: start: 20140106, end: 20140106
  3. PEPCID [Suspect]
     Active Substance: FAMOTIDINE
     Indication: DIARRHOEA
     Dosage: 2 CAPLETS AT FIRST AND THEN 1 CAPLET; 20 MG
     Route: 048
     Dates: start: 20140106, end: 20140106

REACTIONS (1)
  - Drug ineffective [Unknown]
